FAERS Safety Report 23800647 (Version 3)
Quarter: 2024Q2

REPORT INFORMATION
  Report Type: Report from Study
  Country: CA (occurrence: None)
  Receive Date: 20240430
  Receipt Date: 20240516
  Transmission Date: 20240716
  Serious: Yes (Other)
  Sender: FDA-Public Use
  Company Number: 2024A035434

PATIENT
  Sex: Female

DRUGS (4)
  1. TEZEPELUMAB-EKKO [Suspect]
     Active Substance: TEZEPELUMAB-EKKO
     Indication: Asthma
     Dosage: 210.0MG UNKNOWN
     Route: 058
     Dates: start: 20230803
  2. XOLAIR [Concomitant]
     Active Substance: OMALIZUMAB
     Dosage: 3 INJ EVERY 3 WEEKS
  3. VENTOLIN [Concomitant]
     Active Substance: ALBUTEROL SULFATE
     Dosage: 100 MCG AS NEEDED
  4. GLYCOPYRROLATE\INDACATEROL\MOMETASONE FUROATE [Concomitant]
     Active Substance: GLYCOPYRROLATE\INDACATEROL\MOMETASONE FUROATE
     Dosage: 150/50/160 MCG
     Dates: start: 20230120

REACTIONS (7)
  - Arrhythmia [Unknown]
  - Scratch [Unknown]
  - Myalgia [Unknown]
  - Vision blurred [Unknown]
  - Chest pain [Unknown]
  - Arthralgia [Unknown]
  - Drug ineffective [Unknown]
